FAERS Safety Report 5094891-1 (Version None)
Quarter: 2006Q3

REPORT INFORMATION
  Report Type: 
  Country: None (occurrence: None)
  Receive Date: 20060728
  Receipt Date: 20060531
  Transmission Date: 20061208
  Serious: No
  Sender: FDA-Public Use
  Company Number: 253754

PATIENT
  Age: 56 Year
  Sex: Male
  Weight: 99.8 kg

DRUGS (4)
  1. LEVEMIR [Suspect]
     Indication: INSULIN-REQUIRING TYPE II DIABETES MELLITUS
     Dosage: 60 LU, TITRATED FROM 10 UNITS DAILY, SUBCUTANEOUS
     Route: 058
     Dates: start: 20060501, end: 20060501
  2. ACTOS /01460201/ (PIOGLITAZONE) [Concomitant]
  3. AMARYL [Concomitant]
  4. GLUCOPHAGE /00082701/ (METFORMIN) [Concomitant]

REACTIONS (4)
  - INJECTION SITE ERYTHEMA [None]
  - INJECTION SITE MASS [None]
  - INJECTION SITE PAIN [None]
  - INJECTION SITE PRURITUS [None]
